FAERS Safety Report 10541337 (Version 1)
Quarter: 2014Q4

REPORT INFORMATION
  Report Type: Spontaneous
  Country: US (occurrence: None)
  Receive Date: 20141010
  Receipt Date: 20141010
  Transmission Date: 20150529
  Serious: No
  Sender: FDA-Public Use
  Company Number: 163-POMAL-14061906

PATIENT
  Age: 57 Year
  Sex: Male
  Weight: 72.6 kg

DRUGS (6)
  1. ASPIRIN. [Concomitant]
     Active Substance: ASPIRIN
  2. AMOX TR- POTASSIUM CLAVULANATE [Concomitant]
  3. OMEPRAZOLE. [Concomitant]
     Active Substance: OMEPRAZOLE
  4. AZITHROMYCIN [Concomitant]
     Active Substance: AZITHROMYCIN ANHYDROUS
  5. POMALYST [Suspect]
     Active Substance: POMALIDOMIDE
     Indication: PLASMA CELL MYELOMA
     Route: 048
     Dates: start: 201304
  6. ALFUZOSIN HCL (ALFUZOSIN HYDROCHLORIDE) [Concomitant]

REACTIONS (1)
  - Coagulopathy [None]

NARRATIVE: CASE EVENT DATE: 20140609
